FAERS Safety Report 8924072 (Version 1)
Quarter: 2012Q4

REPORT INFORMATION
  Report Type: 
  Country: GB (occurrence: GB)
  Receive Date: 20121127
  Receipt Date: 20121127
  Transmission Date: 20130627
  Serious: Yes (Other)
  Sender: FDA-Public Use
  Company Number: GB-ACCORD-015376

PATIENT
  Age: 45 Year
  Sex: Female
  Weight: 55 kg

DRUGS (1)
  1. QUETIAPINE FUMARATE [Suspect]
     Indication: BIPOLAR AFFECTIVE DISORDER
     Dosage: Ongoing
     Route: 048
     Dates: start: 20110310

REACTIONS (1)
  - Rosacea [Recovering/Resolving]
